FAERS Safety Report 6300129-7 (Version None)
Quarter: 2009Q3

REPORT INFORMATION
  Report Type: 
  Country: None (occurrence: None)
  Receive Date: 20090806
  Receipt Date: 20090728
  Transmission Date: 20100115
  Serious: Yes (Hospitalization, Other)
  Sender: FDA-Public Use
  Company Number: DK-ABBOTT-09P-044-0584352-00

PATIENT
  Sex: Male
  Weight: 93 kg

DRUGS (2)
  1. HUMIRA [Suspect]
     Indication: SPONDYLITIS
     Route: 058
     Dates: start: 20060323, end: 20060615
  2. HUMIRA [Suspect]
     Route: 058
     Dates: start: 20060615

REACTIONS (1)
  - RECTAL CANCER [None]
